FAERS Safety Report 5167292-5 (Version None)
Quarter: 2006Q4

REPORT INFORMATION
  Report Type: 
  Country: None (occurrence: None)
  Receive Date: 20061130
  Receipt Date: 20061120
  Transmission Date: 20070319
  Serious: Yes (Other)
  Sender: FDA-Public Use
  Company Number: 2006SP005900

PATIENT
  Age: 84 Year
  Sex: Female
  Weight: 76.6579 kg

DRUGS (7)
  1. NASONEX [Suspect]
     Indication: NASAL CONGESTION
     Dosage: 4 DF; QD; NAS
     Route: 045
     Dates: start: 20061030, end: 20061031
  2. COUMADIN [Concomitant]
  3. SOTALOL HYDROCHLORIDE [Concomitant]
  4. LASIX [Concomitant]
  5. POTASSIUM ACETATE [Concomitant]
  6. ASCORBIC ACID [Concomitant]
  7. VITAMIN E [Concomitant]

REACTIONS (2)
  - BLINDNESS UNILATERAL [None]
  - VISION BLURRED [None]
